FAERS Safety Report 7939467-0 (Version None)
Quarter: 2011Q4

REPORT INFORMATION
  Report Type: 
  Country: None (occurrence: None)
  Receive Date: 20111125
  Receipt Date: 20111110
  Transmission Date: 20120403
  Serious: Yes (Hospitalization)
  Sender: FDA-Public Use
  Company Number: US-ROCHE-1012083

PATIENT
  Sex: Female
  Weight: 52.21 kg

DRUGS (8)
  1. RITALIN [Concomitant]
     Route: 048
     Dates: start: 20111001
  2. MAGNESIUM HYDROXIDE [Concomitant]
     Dosage: 30 CC
     Route: 048
     Dates: start: 20110901
  3. ATIVAN [Concomitant]
     Route: 048
     Dates: start: 20111001
  4. AVASTIN [Suspect]
     Indication: RENAL CANCER
     Route: 042
  5. OXYCODONE HCL [Concomitant]
     Dates: start: 20110701
  6. SANCUSO [Concomitant]
     Dates: start: 20111001
  7. COMPAZINE [Concomitant]
  8. XANAX [Concomitant]
     Dates: start: 20111001

REACTIONS (1)
  - PLEURAL EFFUSION [None]
